FAERS Safety Report 8508026-3 (Version None)
Quarter: 2012Q3

REPORT INFORMATION
  Report Type: 
  Country: None (occurrence: None)
  Receive Date: 20120713
  Receipt Date: 20120706
  Transmission Date: 20120928
  Serious: Yes (Other)
  Sender: FDA-Public Use
  Company Number: PHHY2011CA73994

PATIENT
  Sex: Female

DRUGS (6)
  1. PERCOCET [Concomitant]
  2. VITAMIN B-12 [Concomitant]
  3. SANDOSTATIN [Suspect]
     Indication: SHORT-BOWEL SYNDROME
     Dosage: UNK
     Route: 058
  4. CELEBREX [Concomitant]
  5. SANDOSTATIN LAR [Suspect]
     Indication: SHORT-BOWEL SYNDROME
     Dosage: 30 MG EVERY 3 WEEKS
     Route: 030
     Dates: start: 20041231
  6. OMEPRAZOLE (PRISOLEC) [Concomitant]

REACTIONS (2)
  - GENERALISED OEDEMA [None]
  - VULVAL CANCER STAGE I [None]
